FAERS Safety Report 23127387 (Version 3)
Quarter: 2023Q4

REPORT INFORMATION
  Report Type: Spontaneous
  Country: US (occurrence: US)
  Receive Date: 20231031
  Receipt Date: 20231204
  Transmission Date: 20240109
  Serious: No
  Sender: FDA-Public Use
  Company Number: US-AMGEN-USASP2023191412

PATIENT
  Sex: Female

DRUGS (1)
  1. ARANESP [Suspect]
     Active Substance: DARBEPOETIN ALFA
     Indication: Myelodysplastic syndrome
     Dosage: UNK UNK, Q2WK
     Route: 065

REACTIONS (4)
  - Drug specific antibody [Unknown]
  - Blood erythropoietin abnormal [Unknown]
  - Blood iron increased [Unknown]
  - Off label use [Unknown]
